FAERS Safety Report 9498861 (Version 1)
Quarter: 2013Q3

REPORT INFORMATION
  Report Type: Spontaneous
  Country: US (occurrence: None)
  Receive Date: 20130830
  Receipt Date: 20130830
  Transmission Date: 20140515
  Serious: Yes (Hospitalization)
  Sender: FDA-Public Use
  Company Number: HA13-278-AE

PATIENT
  Age: 26 Year
  Sex: Female
  Weight: 81.65 kg

DRUGS (1)
  1. SMZ-TMP [Suspect]
     Indication: SKIN INFECTION
     Route: 048
     Dates: start: 201307, end: 20130802

REACTIONS (9)
  - Pruritus [None]
  - Rash [None]
  - Chromaturia [None]
  - Swelling face [None]
  - Local swelling [None]
  - Lip swelling [None]
  - Throat irritation [None]
  - Liver function test abnormal [None]
  - Drug ineffective [None]
